FAERS Safety Report 5274411-9 (Version None)
Quarter: 2007Q1

REPORT INFORMATION
  Report Type: 
  Country: None (occurrence: None)
  Receive Date: 20070323
  Receipt Date: 20070315
  Transmission Date: 20070707
  Serious: Yes (Hospitalization, Other)
  Sender: FDA-Public Use
  Company Number: JP-PFIZER INC-2007016741

PATIENT
  Age: 74 Year
  Sex: Female

DRUGS (14)
  1. DETRUSITOL SR [Suspect]
     Dosage: DAILY DOSE:4MG
     Route: 048
  2. NORVASC [Concomitant]
     Route: 048
  3. SOLANAX [Concomitant]
     Route: 048
  4. DESYREL [Concomitant]
     Route: 048
  5. VESICARE [Concomitant]
     Route: 048
  6. PROTHIADEN [Concomitant]
     Route: 048
  7. PAXIL [Concomitant]
     Route: 048
  8. SENNOSIDE A+B CALCIUM [Concomitant]
     Route: 048
  9. FAMOTIDINE [Concomitant]
     Route: 048
  10. ALOSENN [Concomitant]
     Route: 048
  11. EVISTA [Concomitant]
     Route: 048
  12. LOXONIN [Concomitant]
     Route: 048
  13. TROXSIN [Concomitant]
     Route: 048
  14. ACETAMINOPHEN [Concomitant]
     Route: 048

REACTIONS (3)
  - ASTHENIA [None]
  - BLOOD CREATINE PHOSPHOKINASE INCREASED [None]
  - MYOGLOBIN BLOOD INCREASED [None]
